FAERS Safety Report 7087987-6 (Version None)
Quarter: 2010Q4

REPORT INFORMATION
  Report Type: 
  Country: None (occurrence: None)
  Receive Date: 20101108
  Receipt Date: 20101103
  Transmission Date: 20110411
  Serious: Yes (Death)
  Sender: FDA-Public Use
  Company Number: BR-BRISTOL-MYERS SQUIBB COMPANY-15347057

PATIENT
  Sex: Female

DRUGS (3)
  1. ONGLYZA [Suspect]
     Indication: DIABETES MELLITUS
     Dosage: TOTAL:14 TABS
     Route: 048
     Dates: start: 20100101
  2. METFORMIN HCL [Concomitant]
  3. SOMALGIN [Concomitant]

REACTIONS (1)
  - CARDIO-RESPIRATORY ARREST [None]
